FAERS Safety Report 18098454 (Version 2)
Quarter: 2020Q3

REPORT INFORMATION
  Report Type: Spontaneous
  Country: US (occurrence: US)
  Receive Date: 20200731
  Receipt Date: 20200911
  Transmission Date: 20201103
  Serious: Yes (Death)
  Sender: FDA-Public Use
  Company Number: US-BIO PRODUCTS LABORATORY LTD-2087989

PATIENT
  Age: 12 Year
  Sex: Male

DRUGS (2)
  1. CYCLOPHOSPHAMIDE. [Concomitant]
     Active Substance: CYCLOPHOSPHAMIDE
  2. GENERIC IVIG [Suspect]
     Active Substance: HUMAN IMMUNOGLOBULIN G
     Indication: X-LINKED LYMPHOPROLIFERATIVE SYNDROME
     Route: 042

REACTIONS (1)
  - Drug ineffective [Fatal]
